FAERS Safety Report 6695726-3 (Version None)
Quarter: 2010Q2

REPORT INFORMATION
  Report Type: 
  Country: None (occurrence: None)
  Receive Date: 20100426
  Receipt Date: 20100416
  Transmission Date: 20101027
  Serious: Yes (Other)
  Sender: FDA-Public Use
  Company Number: FR-BAYER-200937906GPV

PATIENT
  Age: 50 Year
  Sex: Female
  Weight: 64 kg

DRUGS (2)
  1. MIRENA [Suspect]
     Indication: MENORRHAGIA
     Route: 015
     Dates: start: 20040801, end: 20090904
  2. MIRENA [Suspect]
     Route: 015
     Dates: start: 20090904

REACTIONS (2)
  - HEADACHE [None]
  - MENINGIOMA [None]
